FAERS Safety Report 5407911-9 (Version None)
Quarter: 2007Q3

REPORT INFORMATION
  Report Type: 
  Country: None (occurrence: None)
  Receive Date: 20070803
  Receipt Date: 20070720
  Transmission Date: 20080115
  Serious: Yes (Other)
  Sender: FDA-Public Use
  Company Number: 016532

PATIENT
  Age: 61 Year
  Sex: Female

DRUGS (3)
  1. METHOTREXATE [Suspect]
     Indication: RHEUMATOID ARTHRITIS
     Dosage: 15 MG, WEEKLY
     Dates: start: 19910301
  2. PREDNISONE TAB [Concomitant]
  3. NAPROXEN [Concomitant]

REACTIONS (2)
  - HISTOPLASMOSIS DISSEMINATED [None]
  - OPPORTUNISTIC INFECTION [None]
